FAERS Safety Report 8996733 (Version 1)
Quarter: 2012Q4

REPORT INFORMATION
  Report Type: Spontaneous
  Country: US (occurrence: None)
  Receive Date: 20121228
  Receipt Date: 20121228
  Transmission Date: 20130627
  Serious: No
  Sender: FDA-Public Use
  Company Number: None

PATIENT
  Age: 57 Year
  Sex: Male

DRUGS (7)
  1. XTANDI [Suspect]
     Indication: PROSTATE CANCER
     Route: 048
     Dates: start: 20120920, end: 20121204
  2. LISINOPRIL [Concomitant]
  3. ZOLPIDEM [Concomitant]
  4. PREDNISONE [Concomitant]
  5. LORAZEPAM [Concomitant]
  6. MS CONTIN [Concomitant]
  7. PROCHLORPERAZINE [Concomitant]

REACTIONS (1)
  - No therapeutic response [None]
